FAERS Safety Report 7954592 (Version 8)
Quarter: 2012Q4

REPORT INFORMATION
  Report Type: 
  Country: US (occurrence: US)
  Receive Date: 20110520
  Receipt Date: 20121126
  Transmission Date: 20130627
  Serious: Yes (Hospitalization, Disabling, Other)
  Sender: FDA-Public Use
  Company Number: US-ASTRAZENECA-2011SE28740

PATIENT
  Age: 53 Year
  Sex: Male
  Weight: 115.2 kg

DRUGS (5)
  1. NEXIUM [Suspect]
     Route: 048
  2. ATACAND [Suspect]
     Route: 048
  3. TOPROL XL [Suspect]
     Route: 048
  4. CRESTOR [Suspect]
     Route: 048
  5. METOPROLOL [Concomitant]
     Route: 048

REACTIONS (9)
  - Aphasia [Unknown]
  - Cerebrovascular accident [Recovered/Resolved with Sequelae]
  - Convulsion [Unknown]
  - Speech disorder [Unknown]
  - Hearing impaired [Unknown]
  - Dysarthria [Unknown]
  - Memory impairment [Unknown]
  - Anxiety [Unknown]
  - Cognitive disorder [Unknown]
